FAERS Safety Report 22660589 (Version 4)
Quarter: 2024Q2

REPORT INFORMATION
  Report Type: Spontaneous
  Country: AU (occurrence: AU)
  Receive Date: 20230630
  Receipt Date: 20240614
  Transmission Date: 20240715
  Serious: Yes (Other)
  Sender: FDA-Public Use
  Company Number: US-VERTEX PHARMACEUTICALS-2023-009359

PATIENT
  Age: 28 Year

DRUGS (1)
  1. TRIKAFTA [Suspect]
     Active Substance: ELEXACAFTOR\IVACAFTOR\TEZACAFTOR
     Indication: Cystic fibrosis
     Dosage: UNKNOWN DOSE
     Route: 048

REACTIONS (26)
  - Illness [Recovered/Resolved]
  - Weight increased [Not Recovered/Not Resolved]
  - Cough [Unknown]
  - Disturbance in social behaviour [Unknown]
  - Dyspnoea exertional [Unknown]
  - Arthralgia [Unknown]
  - Myalgia [Unknown]
  - Fatigue [Unknown]
  - Malnutrition [Unknown]
  - Respiratory tract irritation [Unknown]
  - Abnormal faeces [Unknown]
  - Suicidal ideation [Unknown]
  - Anhedonia [Unknown]
  - Brain fog [Unknown]
  - Eating disorder [Unknown]
  - Disturbance in attention [Unknown]
  - Negative thoughts [Unknown]
  - Mental disorder [Unknown]
  - Poor quality sleep [Unknown]
  - Anxiety [Unknown]
  - Gastrointestinal disorder [Unknown]
  - Initial insomnia [Unknown]
  - Disturbance in social behaviour [Unknown]
  - Depression [Unknown]
  - Influenza [Unknown]
  - Abdominal pain upper [Unknown]
